FAERS Safety Report 6475343-0 (Version None)
Quarter: 2009Q4

REPORT INFORMATION
  Report Type: 
  Country: None (occurrence: None)
  Receive Date: 20091204
  Receipt Date: 20091124
  Transmission Date: 20100525
  Serious: Yes (Other)
  Sender: FDA-Public Use
  Company Number: BR-JNJFOC-20091107783

PATIENT
  Age: 34 Year
  Sex: Female
  Weight: 57.5 kg

DRUGS (2)
  1. ULTRACET [Suspect]
     Indication: BACK PAIN
     Route: 048
  2. OXANDROLONE [Concomitant]
     Route: 065

REACTIONS (7)
  - FLUID RETENTION [None]
  - FORMICATION [None]
  - MUSCLE RIGIDITY [None]
  - NAUSEA [None]
  - OEDEMA PERIPHERAL [None]
  - SWELLING FACE [None]
  - VISION BLURRED [None]
